FAERS Safety Report 5532710-7 (Version None)
Quarter: 2007Q4

REPORT INFORMATION
  Report Type: 
  Country: None (occurrence: None)
  Receive Date: 20071120
  Receipt Date: 20070815
  Transmission Date: 20080405
  Serious: No
  Sender: FDA-Public Use
  Company Number: TPA2007A01734

PATIENT
  Age: 45 Year
  Sex: Female
  Weight: 66.6788 kg

DRUGS (5)
  1. ROZEREM [Suspect]
     Indication: INSOMNIA
     Dosage: 8 MG, QHS, PER ORAL
     Route: 048
     Dates: start: 20070620, end: 20070701
  2. GEODON [Concomitant]
  3. KLONOPIN [Concomitant]
  4. PEPCID [Concomitant]
  5. CYMBALTA [Concomitant]

REACTIONS (3)
  - INITIAL INSOMNIA [None]
  - MUSCULOSKELETAL PAIN [None]
  - SOMNOLENCE [None]
